FAERS Safety Report 6481476-5 (Version None)
Quarter: 2009Q4

REPORT INFORMATION
  Report Type: 
  Country: None (occurrence: None)
  Receive Date: 20091123
  Receipt Date: 20090930
  Transmission Date: 20100525
  Serious: No
  Sender: FDA-Public Use
  Company Number: 8052801

PATIENT
  Sex: Female

DRUGS (3)
  1. CIMZIA [Suspect]
     Dosage: 200 MG SC
     Route: 058
     Dates: start: 20090217
  2. PREDNISONE [Concomitant]
  3. FLAGYL [Concomitant]

REACTIONS (1)
  - INVESTIGATION ABNORMAL [None]
